FAERS Safety Report 7867256-4 (Version None)
Quarter: 2011Q4

REPORT INFORMATION
  Report Type: 
  Country: None (occurrence: None)
  Receive Date: 20111028
  Receipt Date: 20111025
  Transmission Date: 20120403
  Serious: Yes (Other)
  Sender: FDA-Public Use
  Company Number: US-SANOFI-AVENTIS-2010SA063703

PATIENT
  Age: 53 Year
  Sex: Male
  Weight: 87.99 kg

DRUGS (6)
  1. LANTUS [Suspect]
     Dosage: DOSE:70 UNIT(S)
     Route: 058
  2. SOLOSTAR [Suspect]
     Dates: start: 20100501
  3. LANTUS [Suspect]
     Dosage: DOSE:45 UNIT(S)
     Route: 058
     Dates: start: 20100501
  4. LANTUS [Suspect]
     Dosage: 40-50UNITS
     Route: 058
  5. SOLOSTAR [Suspect]
     Dates: start: 20100501
  6. INSULINS AND ANALOGUES,FAST-ACTING [Concomitant]

REACTIONS (3)
  - INTERVERTEBRAL DISC PROTRUSION [None]
  - BLOOD GLUCOSE INCREASED [None]
  - HYPOAESTHESIA [None]
